FAERS Safety Report 25544509 (Version 1)
Quarter: 2025Q3

REPORT INFORMATION
  Report Type: Spontaneous
  Country: US (occurrence: US)
  Receive Date: 20250711
  Receipt Date: 20250711
  Transmission Date: 20251021
  Serious: No
  Sender: VERTEX
  Company Number: US-VERTEX PHARMACEUTICALS-2025-010807

PATIENT
  Sex: Female

DRUGS (3)
  1. TRIKAFTA [Suspect]
     Active Substance: ELEXACAFTOR\IVACAFTOR\TEZACAFTOR
     Indication: Cystic fibrosis
     Dosage: 1 ORANGE TAB IN AM; 1 BLUE TAB IN PM
     Route: 048
     Dates: start: 202411
  2. AZTREONAM LYSINE [Suspect]
     Active Substance: AZTREONAM LYSINE
     Indication: Cystic fibrosis
     Dosage: 3 TIMES A DAY FOR 28 DAYS, THEN OFF FOR 28 DAYS
     Dates: start: 202103
  3. CAYSTON [Concomitant]
     Active Substance: AZTREONAM

REACTIONS (2)
  - Sneezing [Not Recovered/Not Resolved]
  - Rhinorrhoea [Not Recovered/Not Resolved]

NARRATIVE: CASE EVENT DATE: 20250101
